FAERS Safety Report 4972828-0 (Version None)
Quarter: 2006Q2

REPORT INFORMATION
  Report Type: 
  Country: None (occurrence: None)
  Receive Date: 20060414
  Receipt Date: 20060406
  Transmission Date: 20061013
  Serious: Yes (Other)
  Sender: FDA-Public Use
  Company Number: FR-JNJFOC-20050906809

PATIENT
  Sex: Male

DRUGS (3)
  1. RISPERDAL [Suspect]
     Route: 048
  2. TRANXENE [Concomitant]
  3. HEPT-A-MYL [Concomitant]
     Indication: HYPOTENSION

REACTIONS (6)
  - BULIMIA NERVOSA [None]
  - GYNAECOMASTIA [None]
  - MIGRAINE WITH AURA [None]
  - VISUAL DISTURBANCE [None]
  - VISUAL FIELD DEFECT [None]
  - WEIGHT INCREASED [None]
